FAERS Safety Report 12397251 (Version 1)
Quarter: 2016Q2

REPORT INFORMATION
  Report Type: Spontaneous
  Country: US (occurrence: None)
  Receive Date: 20160523
  Receipt Date: 20160523
  Transmission Date: 20160815
  Serious: Yes (Other)
  Sender: FDA-Public Use
  Company Number: None

PATIENT
  Age: 61 Year
  Sex: Female
  Weight: 64.41 kg

DRUGS (1)
  1. DESLORATADINE 5MG [Suspect]
     Active Substance: DESLORATADINE
     Indication: RHINITIS ALLERGIC
     Route: 048
     Dates: start: 20160401, end: 20160402

REACTIONS (4)
  - Dysphonia [None]
  - Urticaria [None]
  - Pruritus generalised [None]
  - Rash macular [None]

NARRATIVE: CASE EVENT DATE: 20160402
